FAERS Safety Report 6152093-1 (Version None)
Quarter: 2009Q2

REPORT INFORMATION
  Report Type: 
  Country: None (occurrence: None)
  Receive Date: 20090409
  Receipt Date: 20090409
  Transmission Date: 20091009
  Serious: Yes (Disabling)
  Sender: FDA-Public Use
  Company Number: None

PATIENT
  Age: 53 Year
  Sex: Female
  Weight: 74.7 kg

DRUGS (15)
  1. CETUXIMAB [Suspect]
     Indication: ADENOCARCINOMA PANCREAS
     Dosage: 940 MG EVERY 2 WEEKS IV
     Route: 042
     Dates: start: 20090402, end: 20090402
  2. SPIRIVA [Concomitant]
  3. NEXIUM [Concomitant]
  4. ACYCLOVIR [Concomitant]
  5. CARDIZEM [Concomitant]
  6. ZYRTEC [Concomitant]
  7. FLONASE [Concomitant]
  8. SINGULAIR [Concomitant]
  9. ACTONEL [Concomitant]
  10. MAXAIR [Concomitant]
  11. PREDNISONE [Concomitant]
  12. XOPENEX [Concomitant]
  13. LORAZEPAM [Concomitant]
  14. URSODIOL [Concomitant]
  15. IMITREX [Concomitant]

REACTIONS (4)
  - OROPHARYNGEAL PAIN [None]
  - RASH GENERALISED [None]
  - THROAT IRRITATION [None]
  - WHEEZING [None]
